FAERS Safety Report 8006635 (Version 5)
Quarter: 2013Q1

REPORT INFORMATION
  Report Type: Spontaneous
  Country: US (occurrence: US)
  Receive Date: 20110623
  Receipt Date: 20130222
  Transmission Date: 20140127
  Serious: Yes (Hospitalization, Other)
  Sender: FDA-Public Use
  Company Number: US-PFIZER INC-2011136466

PATIENT
  Sex: Female

DRUGS (2)
  1. LIPITOR [Suspect]
     Dosage: UNK
     Route: 048
  2. PLAVIX [Suspect]
     Indication: VASCULAR GRAFT
     Dosage: UNK
     Route: 048

REACTIONS (5)
  - Oesophageal ulcer [Unknown]
  - Cardiac disorder [Unknown]
  - Vascular graft [Unknown]
  - Coronary artery bypass [Unknown]
  - Dysphagia [Unknown]
